FAERS Safety Report 15995090 (Version 2)
Quarter: 2019Q1

REPORT INFORMATION
  Report Type: Spontaneous
  Country: US (occurrence: US)
  Receive Date: 20190222
  Receipt Date: 20190306
  Transmission Date: 20190418
  Serious: Yes (Death, Other)
  Sender: FDA-Public Use
  Company Number: PHEH2019US007921

PATIENT
  Sex: Female

DRUGS (1)
  1. TASIGNA [Suspect]
     Active Substance: NILOTINIB
     Indication: CHRONIC MYELOID LEUKAEMIA
     Dosage: 02 DF, BID
     Route: 048
     Dates: start: 2012

REACTIONS (48)
  - Deafness neurosensory [Unknown]
  - Partial seizures [Unknown]
  - Dupuytren^s contracture [Unknown]
  - Hypertension [Unknown]
  - Arteriosclerosis [Unknown]
  - Large intestine polyp [Unknown]
  - Rash macular [Unknown]
  - Back pain [Unknown]
  - Hyperparathyroidism [Unknown]
  - Vertigo [Unknown]
  - Dizziness [Unknown]
  - Cerebrovascular accident [Unknown]
  - Diverticulum [Unknown]
  - Constipation [Unknown]
  - Peripheral vascular disorder [Unknown]
  - Movement disorder [Unknown]
  - Pharyngitis [Unknown]
  - Hyperlipidaemia [Unknown]
  - Peptic ulcer [Unknown]
  - Pleural effusion [Unknown]
  - Bradycardia [Unknown]
  - Syncope [Unknown]
  - Cardiomegaly [Unknown]
  - Abdominal pain upper [Unknown]
  - Abdominal pain [Unknown]
  - Gastritis [Unknown]
  - Anaemia [Unknown]
  - Hypercalcaemia [Unknown]
  - Death [Fatal]
  - Ovarian cancer [Unknown]
  - Second primary malignancy [Unknown]
  - Hydrocholecystis [Unknown]
  - Encephalopathy [Unknown]
  - Carotid artery stenosis [Unknown]
  - Coronary artery disease [Unknown]
  - Tenosynovitis stenosans [Unknown]
  - Jugular vein thrombosis [Unknown]
  - Gastrooesophageal reflux disease [Unknown]
  - Skin exfoliation [Unknown]
  - Hypercholesterolaemia [Unknown]
  - Fatigue [Unknown]
  - Urinary tract infection [Unknown]
  - Thrombosis [Unknown]
  - Ischaemic stroke [Unknown]
  - Radiculopathy [Unknown]
  - Insomnia [Unknown]
  - Herpes zoster [Unknown]
  - Diplopia [Unknown]
